FAERS Safety Report 5792373-2 (Version None)
Quarter: 2008Q2

REPORT INFORMATION
  Report Type: 
  Country: None (occurrence: None)
  Receive Date: 20080626
  Receipt Date: 20080404
  Transmission Date: 20081010
  Serious: No
  Sender: FDA-Public Use
  Company Number: US-ASTRAZENECA-2008UW06797

PATIENT
  Age: 78 Year
  Sex: Female
  Weight: 78.9 kg

DRUGS (7)
  1. PULMICORT RESPULES [Suspect]
     Indication: EMPHYSEMA
     Route: 055
     Dates: start: 20080402
  2. ALBUTEROL [Concomitant]
  3. COMBIVENT [Concomitant]
  4. RHINOCORT [Concomitant]
     Dosage: 1-2 SPRAYS ONCE A  DAY
     Route: 045
  5. PREDNISONE [Concomitant]
  6. LEVOXYL [Concomitant]
  7. LOVASTATIN [Concomitant]

REACTIONS (2)
  - DYSPNOEA [None]
  - FEELING ABNORMAL [None]
